FAERS Safety Report 6125343-5 (Version None)
Quarter: 2009Q1

REPORT INFORMATION
  Report Type: 
  Country: None (occurrence: None)
  Receive Date: 20090320
  Receipt Date: 20090318
  Transmission Date: 20090719
  Serious: Yes (Hospitalization)
  Sender: FDA-Public Use
  Company Number: US-ASTRAZENECA-2009UW07022

PATIENT
  Age: 74 Year
  Sex: Female

DRUGS (3)
  1. PULMICORT RESPULES [Suspect]
     Route: 055
     Dates: start: 20081001
  2. XOPENEX [Concomitant]
  3. IPRATROPIUM BROMIDE [Concomitant]

REACTIONS (1)
  - GALLBLADDER OPERATION [None]
